FAERS Safety Report 23092281 (Version 1)
Quarter: 2023Q4

REPORT INFORMATION
  Report Type: Report from Study
  Country: EG (occurrence: EG)
  Receive Date: 20231021
  Receipt Date: 20231021
  Transmission Date: 20240109
  Serious: Yes (Other)
  Sender: FDA-Public Use
  Company Number: EG-002147023-NVSC2023EG225480

PATIENT
  Age: 29 Year
  Sex: Male

DRUGS (2)
  1. LEQVIO [Suspect]
     Active Substance: INCLISIRAN SODIUM
     Indication: Hypercholesterolaemia
     Dosage: UNK (ONE DOSE INITIALLY, SECOND DOSE AFTER 3 MONTHS AND THEN TO BE EVERY 6 MONTHS)
     Route: 058
     Dates: start: 20230808
  2. REPATHA [Concomitant]
     Active Substance: EVOLOCUMAB
     Indication: Hypercholesterolaemia
     Dosage: UNK (TWO YEARS AGO) (STOOPED BEFORE LEQVIO) (TWO INJECTIONS EVERY MONTH) (THE PATIENT COULD NOT REME
     Route: 065
     Dates: end: 202302

REACTIONS (1)
  - Arterial stenosis [Recovering/Resolving]

NARRATIVE: CASE EVENT DATE: 20230821
